FAERS Safety Report 23141092 (Version 3)
Quarter: 2023Q4

REPORT INFORMATION
  Report Type: Spontaneous
  Country: ES (occurrence: ES)
  Receive Date: 20231103
  Receipt Date: 20231207
  Transmission Date: 20240109
  Serious: Yes (Other)
  Sender: FDA-Public Use
  Company Number: ES-ROCHE-3427109

PATIENT
  Age: 56 Year
  Sex: Female

DRUGS (18)
  1. GEMCITABINE [Suspect]
     Active Substance: GEMCITABINE
     Indication: Ovarian cancer
     Dosage: 1000 MILLIGRAM/SQ. METER (ON DAYS 1 AND 8 EVERY 3 WEEKS CYCLICAL)
     Route: 065
     Dates: start: 201704
  2. PACLITAXEL [Suspect]
     Active Substance: PACLITAXEL
     Indication: Ovarian cancer
     Dosage: 175 MILLIGRAM/SQ. METER
     Route: 065
     Dates: start: 201509
  3. PACLITAXEL [Suspect]
     Active Substance: PACLITAXEL
     Dosage: UNK
     Route: 033
     Dates: start: 201601
  4. PACLITAXEL [Suspect]
     Active Substance: PACLITAXEL
     Dosage: 80 MILLIGRAM/SQ. METER,EVERY WEEK CYCLICAL (FIFTH LINE )
     Route: 065
     Dates: start: 202004
  5. CARBOPLATIN [Suspect]
     Active Substance: CARBOPLATIN
     Indication: Ovarian cancer
     Dosage: UNK (AUC 5)
     Route: 065
     Dates: start: 201509
  6. CARBOPLATIN [Suspect]
     Active Substance: CARBOPLATIN
     Dosage: UNK (AUC 5 ON DAY 1)
     Route: 065
     Dates: start: 201704
  7. ATEZOLIZUMAB [Suspect]
     Active Substance: ATEZOLIZUMAB
     Indication: Ovarian cancer
     Dosage: 1200 MILLIGRAM, CYCLICAL EVERY 21 DAYS
     Route: 065
     Dates: start: 201811
  8. BEVACIZUMAB [Suspect]
     Active Substance: BEVACIZUMAB
     Indication: Ovarian cancer
     Dosage: 7.5 MILLIGRAM/SQ. METER
     Route: 065
     Dates: start: 201509
  9. BEVACIZUMAB [Suspect]
     Active Substance: BEVACIZUMAB
     Dosage: 7.5 MILLIGRAM/KILOGRAM  (THIRD CYCLE)
     Route: 065
     Dates: start: 201811
  10. OLAPARIB [Suspect]
     Active Substance: OLAPARIB
     Indication: Ovarian cancer
     Dosage: 50 MILLIGRAM, TWO TIMES A DAY
     Route: 065
     Dates: start: 201704
  11. OLAPARIB [Suspect]
     Active Substance: OLAPARIB
     Dosage: 50 MILLIGRAM, TWO TIMES A DAY
     Route: 065
     Dates: start: 201709
  12. DOXORUBICIN [Suspect]
     Active Substance: DOXORUBICIN
     Indication: Ovarian cancer
     Dosage: 30 MILLIGRAM/SQ. METER (CYCLICAL EVERY 21 DAYS)
     Route: 065
     Dates: start: 201909, end: 202003
  13. YONDELIS [Suspect]
     Active Substance: TRABECTEDIN
     Indication: Ovarian cancer
     Dosage: 1.1 MILLIGRAM/SQ. METER EVERY 3 WEEKS
     Route: 065
     Dates: start: 201909
  14. TOPOTECAN [Concomitant]
     Active Substance: TOPOTECAN HYDROCHLORIDE
     Indication: Product used for unknown indication
     Dosage: ON DAYS 1, 8, AND 15
     Route: 065
  15. LEVOTHYROXINE [Concomitant]
     Active Substance: LEVOTHYROXINE
     Indication: Hypothyroidism
     Dosage: 50 MILLIGRAM, ONCE A DAY
     Route: 065
  16. HYDROCHLOROTHIAZIDE\IRBESARTAN [Concomitant]
     Active Substance: HYDROCHLOROTHIAZIDE\IRBESARTAN
     Indication: Hypertension
     Dosage: 150 MILLIGRAM
     Route: 065
  17. CISPLATIN [Concomitant]
     Active Substance: CISPLATIN
     Indication: Ovarian cancer
     Dosage: UNK
     Route: 065
  18. ROSUVASTATIN [Concomitant]
     Active Substance: ROSUVASTATIN
     Indication: Hypercholesterolaemia
     Dosage: 10 MILLIGRAM, ONCE A DAY
     Route: 065

REACTIONS (7)
  - Anaemia [Unknown]
  - Asthenia [Unknown]
  - Anaphylactic reaction [Unknown]
  - Vomiting [Unknown]
  - Hypersensitivity [Unknown]
  - Nausea [Unknown]
  - Drug ineffective [Unknown]

NARRATIVE: CASE EVENT DATE: 20150101
